FAERS Safety Report 10191327 (Version 8)
Quarter: 2020Q4

REPORT INFORMATION
  Report Type: Report from Study
  Country: US (occurrence: US)
  Receive Date: 20140523
  Receipt Date: 20201202
  Transmission Date: 20210113
  Serious: Yes (Other)
  Sender: FDA-Public Use
  Company Number: US-SA-2014SA064952

PATIENT
  Age: 56 Year
  Sex: Female
  Weight: 65 kg

DRUGS (3)
  1. AMPYRA [Concomitant]
     Active Substance: DALFAMPRIDINE
     Dosage: UNK
  2. TERIFLUNOMIDE. [Suspect]
     Active Substance: TERIFLUNOMIDE
     Dosage: 14 MG,QD
     Route: 048
     Dates: start: 20121109, end: 20140530
  3. TERIFLUNOMIDE. [Suspect]
     Active Substance: TERIFLUNOMIDE
     Dosage: 14 MG,QD
     Route: 048
     Dates: start: 202007

REACTIONS (11)
  - Vitamin D increased [Unknown]
  - Memory impairment [Unknown]
  - Osteoporosis [Unknown]
  - Blood calcium increased [Unknown]
  - Alopecia [Unknown]
  - Multiple sclerosis [Recovering/Resolving]
  - Rash [Unknown]
  - Amnesia [Unknown]
  - Laryngitis [Unknown]
  - Condition aggravated [Unknown]
  - Muscle twitching [Unknown]

NARRATIVE: CASE EVENT DATE: 2014
